FAERS Safety Report 15532715 (Version 2)
Quarter: 2018Q4

REPORT INFORMATION
  Report Type: Spontaneous
  Country: US (occurrence: US)
  Receive Date: 20181019
  Receipt Date: 20181030
  Transmission Date: 20190205
  Serious: Yes (Other)
  Sender: FDA-Public Use
  Company Number: US-INSYS THERAPEUTICS, INC-INS201810-000372

PATIENT
  Sex: Female

DRUGS (1)
  1. SUBSYS [Suspect]
     Active Substance: FENTANYL
     Indication: PHANTOM PAIN
     Route: 060
     Dates: start: 201412, end: 201710

REACTIONS (7)
  - Lethargy [Unknown]
  - Somnolence [Unknown]
  - Drug ineffective for unapproved indication [Unknown]
  - Impaired work ability [Unknown]
  - Emotional distress [Unknown]
  - Drug dependence [Unknown]
  - Withdrawal syndrome [Unknown]
